FAERS Safety Report 8601248-2 (Version None)
Quarter: 2012Q3

REPORT INFORMATION
  Report Type: 
  Country: None (occurrence: None)
  Receive Date: 20120817
  Receipt Date: 20120815
  Transmission Date: 20120928
  Serious: Yes (Other)
  Sender: FDA-Public Use
  Company Number: PHHY2012BR044226

PATIENT
  Age: 82 Year
  Sex: Male

DRUGS (2)
  1. EXELON [Suspect]
     Indication: MEMORY IMPAIRMENT
     Dosage: 4.6 MG, DAILY
     Route: 062
  2. EXELON [Suspect]
     Dosage: 9.5 MG, DAILY
     Route: 062

REACTIONS (6)
  - COLD SWEAT [None]
  - DIARRHOEA [None]
  - MALAISE [None]
  - MEMORY IMPAIRMENT [None]
  - VOMITING [None]
  - HYPERTENSION [None]
